FAERS Safety Report 24840496 (Version 1)
Quarter: 2025Q1

REPORT INFORMATION
  Report Type: Spontaneous
  Country: FR (occurrence: FR)
  Receive Date: 20250114
  Receipt Date: 20250114
  Transmission Date: 20250409
  Serious: Yes (Hospitalization, Other)
  Sender: ROCHE
  Company Number: None

PATIENT
  Age: 51 Year
  Sex: Male
  Weight: 91 kg

DRUGS (13)
  1. BACTRIM [Suspect]
     Active Substance: SULFAMETHOXAZOLE\TRIMETHOPRIM
     Indication: Product used for unknown indication
     Route: 048
     Dates: start: 202407, end: 20241204
  2. VALGANCICLOVIR [Suspect]
     Active Substance: VALGANCICLOVIR
     Indication: Product used for unknown indication
     Route: 048
     Dates: start: 202407, end: 20241204
  3. NULOJIX [Suspect]
     Active Substance: BELATACEPT
     Indication: Prophylaxis against transplant rejection
     Route: 042
     Dates: start: 20241009, end: 20241009
  4. NULOJIX [Suspect]
     Active Substance: BELATACEPT
     Route: 042
     Dates: start: 20241023, end: 20241023
  5. NULOJIX [Suspect]
     Active Substance: BELATACEPT
     Route: 042
     Dates: start: 20241106, end: 20241106
  6. NULOJIX [Suspect]
     Active Substance: BELATACEPT
     Route: 042
     Dates: start: 20241121, end: 20241121
  7. PREDNISONE [Concomitant]
     Active Substance: PREDNISONE
     Indication: Immunosuppression
     Route: 065
  8. SIMULECT [Concomitant]
     Active Substance: BASILIXIMAB
     Indication: Immunosuppression
     Route: 065
  9. TACROLIMUS [Concomitant]
     Active Substance: TACROLIMUS
     Indication: Immunosuppression
     Route: 065
  10. TACROLIMUS [Concomitant]
     Active Substance: TACROLIMUS
     Route: 065
     Dates: start: 20241006
  11. TACROLIMUS [Concomitant]
     Active Substance: TACROLIMUS
     Route: 065
     Dates: start: 20241023, end: 20241113
  12. MYFORTIC [Concomitant]
     Active Substance: MYCOPHENOLATE SODIUM
     Indication: Immunosuppression
     Route: 065
  13. MYFORTIC [Concomitant]
     Active Substance: MYCOPHENOLATE SODIUM
     Route: 065

REACTIONS (7)
  - Pneumonia respiratory syncytial viral [Recovered/Resolved]
  - Congenital aplasia [Unknown]
  - Hypokalaemia [Unknown]
  - Febrile neutropenia [Unknown]
  - Leukopenia [Unknown]
  - Agranulocytosis [Recovering/Resolving]
  - Sinus tachycardia [Unknown]

NARRATIVE: CASE EVENT DATE: 20241130
